FAERS Safety Report 6501594-2 (Version None)
Quarter: 2009Q4

REPORT INFORMATION
  Report Type: 
  Country: None (occurrence: None)
  Receive Date: 20091214
  Receipt Date: 20091214
  Transmission Date: 20100525
  Serious: Yes (Other)
  Sender: FDA-Public Use
  Company Number: None

PATIENT
  Sex: Male
  Weight: 95.2554 kg

DRUGS (1)
  1. ZICAM NORMAL STRENGTH ZICAM LLC/MATRIXX INDUSTRIES, INC. [Suspect]
     Indication: NASOPHARYNGITIS
     Dates: start: 20080101, end: 20091212

REACTIONS (1)
  - ANOSMIA [None]
